FAERS Safety Report 7488779-6 (Version None)
Quarter: 2011Q2

REPORT INFORMATION
  Report Type: 
  Country: None (occurrence: None)
  Receive Date: 20110518
  Receipt Date: 20110513
  Transmission Date: 20111010
  Serious: Yes (Other)
  Sender: FDA-Public Use
  Company Number: US-PFIZER INC-2010156184

PATIENT
  Sex: Male
  Weight: 74.83 kg

DRUGS (4)
  1. PRISTIQ [Suspect]
  2. ZOLOFT [Suspect]
     Indication: DEPRESSION
     Dosage: 50 MG, 1X/DAY
     Route: 048
     Dates: start: 20100101
  3. IBUPROFEN [Concomitant]
     Indication: PAIN
     Dosage: 1000 MG, 1X/DAY
  4. ZOLOFT [Suspect]
     Indication: ANXIETY DISORDER

REACTIONS (2)
  - FACE OEDEMA [None]
  - ALOPECIA [None]
